FAERS Safety Report 5060938-1 (Version None)
Quarter: 2006Q3

REPORT INFORMATION
  Report Type: 
  Country: None (occurrence: None)
  Receive Date: 20060720
  Receipt Date: 20060720
  Transmission Date: 20061208
  Serious: No
  Sender: FDA-Public Use
  Company Number: None

PATIENT
  Age: 69 Year
  Sex: Female
  Weight: 61.2356 kg

DRUGS (1)
  1. TRANSDERM SCOP    0.33MG/24 HR     NOVARTIS -BAXTER- [Suspect]
     Indication: MOTION SICKNESS
     Dosage: 1 PATCH   QD   TRANSDERMAL
     Route: 062
     Dates: start: 20060630, end: 20060702

REACTIONS (8)
  - CEREBROVASCULAR ACCIDENT [None]
  - DEMENTIA ALZHEIMER'S TYPE [None]
  - DISORIENTATION [None]
  - DYSARTHRIA [None]
  - GRIP STRENGTH DECREASED [None]
  - HALLUCINATION [None]
  - HEADACHE [None]
  - INSOMNIA [None]
